FAERS Safety Report 13724987 (Version 2)
Quarter: 2017Q3

REPORT INFORMATION
  Report Type: Report from Study
  Country: ES (occurrence: ES)
  Receive Date: 20170706
  Receipt Date: 20170726
  Transmission Date: 20171127
  Serious: Yes (Hospitalization)
  Sender: FDA-Public Use
  Company Number: ES-B.I. PHARMACEUTICALS,INC./RIDGEFIELD-2017-BI-037084

PATIENT
  Age: 73 Year
  Sex: Male

DRUGS (1)
  1. PRADAXA [Suspect]
     Active Substance: DABIGATRAN ETEXILATE MESYLATE
     Indication: ATRIAL FIBRILLATION
     Route: 065

REACTIONS (7)
  - Multiple injuries [Recovered/Resolved]
  - Haemothorax [Recovered/Resolved]
  - Pelvic haematoma [Recovered/Resolved]
  - Pneumothorax [Recovered/Resolved]
  - Periorbital haematoma [Recovered/Resolved]
  - Accident [Recovered/Resolved]
  - Fracture [Recovered/Resolved]
